FAERS Safety Report 4717597-4 (Version None)
Quarter: 2005Q3

REPORT INFORMATION
  Report Type: 
  Country: None (occurrence: None)
  Receive Date: 20050712
  Receipt Date: 20050418
  Transmission Date: 20060218
  Serious: No
  Sender: FDA-Public Use
  Company Number: 2005S1000071

PATIENT
  Age: 68 Year
  Sex: Female
  Weight: 110 kg

DRUGS (12)
  1. CUBICIN [Suspect]
     Indication: STAPHYLOCOCCAL INFECTION
     Dates: start: 20050112, end: 20050120
  2. BETAPACE [Concomitant]
  3. LASIX [Concomitant]
  4. IMDUR [Concomitant]
  5. POTASSIUM CHLORIDE [Concomitant]
  6. ATIVAN [Concomitant]
  7. ZOLOFT [Concomitant]
  8. VITAMIN E [Concomitant]
  9. OS-CAL [Concomitant]
  10. WARFARIN [Concomitant]
  11. XANAX [Concomitant]
  12. SULFAMETHOXAZOLE + TRIMETHOPRIM [Concomitant]

REACTIONS (2)
  - BLOOD CREATINE PHOSPHOKINASE INCREASED [None]
  - MUSCLE SPASMS [None]
